FAERS Safety Report 11663111 (Version 1)
Quarter: 2015Q4

REPORT INFORMATION
  Report Type: Spontaneous
  Country: US (occurrence: US)
  Receive Date: 20151027
  Receipt Date: 20151027
  Transmission Date: 20160304
  Serious: No
  Sender: FDA-Public Use
  Company Number: US-MEDA-2011010044

PATIENT
  Age: 55 Year
  Sex: Female
  Weight: 52 kg

DRUGS (13)
  1. WELCHOL [Concomitant]
     Active Substance: COLESEVELAM HYDROCHLORIDE
     Indication: BLOOD CHOLESTEROL INCREASED
     Route: 048
  2. FOSAMAX [Concomitant]
     Active Substance: ALENDRONATE SODIUM
     Indication: OSTEOPOROSIS
     Route: 048
  3. LOMOTIL [Concomitant]
     Active Substance: ATROPINE SULFATE\DIPHENOXYLATE HYDROCHLORIDE
     Indication: DIARRHOEA
     Route: 048
  4. EDLUAR [Suspect]
     Active Substance: ZOLPIDEM TARTRATE
     Indication: INITIAL INSOMNIA
     Route: 060
     Dates: start: 20110121
  5. VITAMIN B12 [Concomitant]
     Active Substance: CYANOCOBALAMIN
     Route: 058
  6. MULTIVITAMINS [Concomitant]
     Active Substance: VITAMINS
     Indication: ROUTINE HEALTH MAINTENANCE
     Route: 048
  7. CALCIUM + VIT D [Concomitant]
     Active Substance: CALCIUM\VITAMIN D
     Route: 048
  8. VITAMIN D [Concomitant]
     Active Substance: CHOLECALCIFEROL
     Dosage: PRESCRIPTION STRENGTH
     Route: 048
  9. IMURAN [Concomitant]
     Active Substance: AZATHIOPRINE
     Indication: CROHN^S DISEASE
     Route: 048
  10. VICODIN [Concomitant]
     Active Substance: ACETAMINOPHEN\HYDROCODONE BITARTRATE
     Indication: DIARRHOEA
     Route: 048
  11. EDLUAR [Suspect]
     Active Substance: ZOLPIDEM TARTRATE
     Indication: MIDDLE INSOMNIA
     Route: 060
     Dates: start: 20110121
  12. LEVOTHYROXINE. [Concomitant]
     Active Substance: LEVOTHYROXINE
     Indication: HYPOTHYROIDISM
     Route: 048
  13. VICODIN [Concomitant]
     Active Substance: ACETAMINOPHEN\HYDROCODONE BITARTRATE
     Indication: PAIN
     Route: 048

REACTIONS (3)
  - Dysgeusia [Recovered/Resolved]
  - Nausea [Recovered/Resolved]
  - Hypersomnia [Recovered/Resolved]

NARRATIVE: CASE EVENT DATE: 20110121
